FAERS Safety Report 9946522 (Version 1)
Quarter: 2014Q1

REPORT INFORMATION
  Report Type: Spontaneous
  Country: US (occurrence: US)
  Receive Date: 20140303
  Receipt Date: 20140303
  Transmission Date: 20141002
  Serious: No
  Sender: FDA-Public Use
  Company Number: US-TEVA-466083USA

PATIENT
  Age: 57 Year
  Sex: Female
  Weight: 70.37 kg

DRUGS (6)
  1. COPAXONE [Suspect]
     Indication: MULTIPLE SCLEROSIS
     Dates: start: 1999
  2. VALIUM [Suspect]
     Dosage: 4 MILLIGRAM DAILY;
     Dates: start: 20140222
  3. BACLOFEN [Concomitant]
     Indication: MUSCLE SPASMS
  4. LANTUS [Concomitant]
     Indication: DIABETES MELLITUS
  5. THYROID MEDICATION [Concomitant]
     Indication: HYPOTHYROIDISM
  6. B-12 INJECTIONS [Concomitant]
     Indication: VITAMIN B12 DEFICIENCY

REACTIONS (8)
  - Hyperexplexia [Not Recovered/Not Resolved]
  - Adverse event [Recovered/Resolved]
  - Musculoskeletal stiffness [Recovered/Resolved]
  - Fall [Recovered/Resolved]
  - Somnolence [Unknown]
  - Somnolence [Unknown]
  - Therapeutic response unexpected [Unknown]
  - Off label use [Unknown]
